FAERS Safety Report 4501988-0 (Version None)
Quarter: 2004Q4

REPORT INFORMATION
  Report Type: 
  Country: None (occurrence: None)
  Receive Date: 20041109
  Receipt Date: 20041025
  Transmission Date: 20050328
  Serious: Yes (Hospitalization, Other)
  Sender: FDA-Public Use
  Company Number: 2004241089FI

PATIENT
  Sex: Female

DRUGS (4)
  1. CELEBREX [Suspect]
     Indication: OSTEOARTHRITIS
     Dosage: QD, ORAL
     Route: 048
     Dates: start: 20020101, end: 20020101
  2. THYROXIN (LEVOTHYROXINE SODIUM) [Concomitant]
  3. SOMAC (PANTOPRAZOLE SODIUM) [Concomitant]
  4. CELEBREX [Concomitant]

REACTIONS (4)
  - CHEST PAIN [None]
  - DYSSTASIA [None]
  - HYPOTENSION [None]
  - VERTIGO [None]
